FAERS Safety Report 4341634-2 (Version None)
Quarter: 2004Q2

REPORT INFORMATION
  Report Type: 
  Country: None (occurrence: None)
  Receive Date: 20040419
  Receipt Date: 20040419
  Transmission Date: 20050107
  Serious: Yes (Other)
  Sender: FDA-Public Use
  Company Number: None

PATIENT
  Age: 59 Year
  Sex: Male
  Weight: 81.6475 kg

DRUGS (1)
  1. CIPRO [Suspect]
     Indication: PROSTATE INFECTION
     Dosage: TID
     Dates: start: 20040301, end: 20040313

REACTIONS (5)
  - DISEASE RECURRENCE [None]
  - DRUG INEFFECTIVE [None]
  - GASTROINTESTINAL DISORDER [None]
  - INFECTION [None]
  - PHARMACEUTICAL PRODUCT COMPLAINT [None]
